FAERS Safety Report 6666112-7 (Version None)
Quarter: 2010Q1

REPORT INFORMATION
  Report Type: 
  Country: None (occurrence: None)
  Receive Date: 20100330
  Receipt Date: 20100323
  Transmission Date: 20100710
  Serious: Yes (Death, Hospitalization)
  Sender: FDA-Public Use
  Company Number: 2009US004118

PATIENT
  Age: 51 Year
  Sex: Male

DRUGS (6)
  1. ALEFACEPT (ALEFACEPT) INJECTION [Suspect]
     Indication: RENAL TRANSPLANT
     Dosage: 7.5 MG, TOTAL DOSE, IV NOS ; 7.5 MG, TOTAL DOSE, IV NOS
     Route: 042
     Dates: start: 20090423, end: 20090423
  2. ALEFACEPT (ALEFACEPT) INJECTION [Suspect]
     Indication: RENAL TRANSPLANT
     Dosage: 7.5 MG, TOTAL DOSE, IV NOS ; 7.5 MG, TOTAL DOSE, IV NOS
     Route: 042
     Dates: start: 20090426, end: 20090426
  3. PROGRAF [Suspect]
     Indication: RENAL TRANSPLANT
     Dosage: ORAL
     Route: 048
     Dates: start: 20090425, end: 20091223
  4. MYCOPHENOLATE MOFETIL [Concomitant]
  5. PREDNISONE TAB [Concomitant]
  6. VALCYTE [Concomitant]

REACTIONS (27)
  - ADRENAL INSUFFICIENCY [None]
  - ARTERIOSCLEROSIS [None]
  - BLOOD CULTURE POSITIVE [None]
  - BRONCHOALVEOLAR LAVAGE ABNORMAL [None]
  - CATHETER CULTURE POSITIVE [None]
  - CULTURE URINE POSITIVE [None]
  - CYTOMEGALOVIRUS VIRAEMIA [None]
  - DEHYDRATION [None]
  - DEVICE RELATED SEPSIS [None]
  - DIARRHOEA [None]
  - DIEULAFOY'S VASCULAR MALFORMATION [None]
  - DILATATION VENTRICULAR [None]
  - ENDOCARDITIS STAPHYLOCOCCAL [None]
  - ENTEROCOCCAL INFECTION [None]
  - HAEMATOMA [None]
  - HAEMODIALYSIS [None]
  - HEPATOSPLENOMEGALY [None]
  - HYPOTENSION [None]
  - LYMPHADENOPATHY MEDIASTINAL [None]
  - NEPHRECTOMY [None]
  - PLEURAL EFFUSION [None]
  - PNEUMONIA CYTOMEGALOVIRAL [None]
  - PSEUDOMONAS INFECTION [None]
  - PULMONARY HYPERTENSION [None]
  - RESPIRATORY FAILURE [None]
  - RIGHT ATRIAL DILATATION [None]
  - STAPHYLOCOCCAL INFECTION [None]
